FAERS Safety Report 17799874 (Version 1)
Quarter: 2020Q2

REPORT INFORMATION
  Report Type: Spontaneous
  Country: GB (occurrence: GB)
  Receive Date: 20200518
  Receipt Date: 20200518
  Transmission Date: 20200714
  Serious: Yes (Other)
  Sender: FDA-Public Use
  Company Number: GB-BAYER-2020-044444

PATIENT
  Sex: Female

DRUGS (1)
  1. MIRENA [Suspect]
     Active Substance: LEVONORGESTREL
     Dosage: 20 ?G PER DAY, CONTINOUSLY
     Route: 015

REACTIONS (4)
  - Device breakage [Recovered/Resolved]
  - Complication of device removal [None]
  - Device use issue [None]
  - Embedded device [None]
